FAERS Safety Report 20470639 (Version 1)
Quarter: 2022Q1

REPORT INFORMATION
  Report Type: Spontaneous
  Country: US (occurrence: US)
  Receive Date: 20220214
  Receipt Date: 20220214
  Transmission Date: 20220423
  Serious: No
  Sender: FDA-Public Use
  Company Number: US-BAUSCH-BL-2022-003959

PATIENT
  Age: 69 Year
  Sex: Female

DRUGS (3)
  1. BEPOTASTINE BESILATE [Suspect]
     Active Substance: BEPOTASTINE BESILATE
     Indication: Periorbital swelling
     Dosage: 1 DROP IN ONE EYE
     Route: 047
     Dates: start: 20211221, end: 20211223
  2. BEPOTASTINE BESILATE [Suspect]
     Active Substance: BEPOTASTINE BESILATE
     Indication: Hypersensitivity
  3. REFRESH OPTIVE [Concomitant]
     Active Substance: CARBOXYMETHYLCELLULOSE SODIUM\GLYCERIN
     Indication: Product used for unknown indication
     Dosage: AS NEEDED
     Route: 047

REACTIONS (11)
  - Instillation site pain [Recovered/Resolved]
  - Dizziness [Recovered/Resolved]
  - Rhinorrhoea [Recovered/Resolved]
  - Vulvovaginal burning sensation [Recovered/Resolved]
  - Dysuria [Recovered/Resolved]
  - Facial pain [Recovered/Resolved]
  - Periorbital swelling [Recovering/Resolving]
  - Condition aggravated [Recovering/Resolving]
  - Application site hypersensitivity [Recovered/Resolved]
  - Headache [Recovered/Resolved]
  - Inappropriate schedule of product administration [Unknown]

NARRATIVE: CASE EVENT DATE: 20211221
